FAERS Safety Report 5034726-6 (Version None)
Quarter: 2006Q2

REPORT INFORMATION
  Report Type: 
  Country: None (occurrence: None)
  Receive Date: 20060621
  Receipt Date: 20060517
  Transmission Date: 20061013
  Serious: Yes (Other)
  Sender: FDA-Public Use
  Company Number: ENT 2006-0010

PATIENT
  Age: 74 Year
  Sex: Male

DRUGS (9)
  1. COMTESS (ENTACAPONE) [Suspect]
     Indication: PARKINSON'S DISEASE
     Dosage: 1400 MG ORAL
     Route: 048
     Dates: start: 20050822, end: 20050928
  2. MADOPAR [Concomitant]
  3. APOMORFIN [Concomitant]
  4. AMANTADINE HCL [Concomitant]
  5. SIFROL [Concomitant]
  6. SEROQUEL [Concomitant]
  7. DETRUSITOL [Concomitant]
  8. ARICEPT [Concomitant]
  9. MOTILIUM [Concomitant]

REACTIONS (14)
  - ALANINE AMINOTRANSFERASE INCREASED [None]
  - BLOOD ALKALINE PHOSPHATASE INCREASED [None]
  - BLOOD BILIRUBIN INCREASED [None]
  - BLOOD LACTATE DEHYDROGENASE INCREASED [None]
  - C-REACTIVE PROTEIN INCREASED [None]
  - CHROMATURIA [None]
  - CONFUSIONAL STATE [None]
  - COOMBS TEST POSITIVE [None]
  - FATIGUE [None]
  - GAMMA-GLUTAMYLTRANSFERASE INCREASED [None]
  - HAEMOGLOBIN DECREASED [None]
  - HALLUCINATION [None]
  - HYPERHIDROSIS [None]
  - JAUNDICE [None]
